FAERS Safety Report 15387670 (Version 2)
Quarter: 2018Q4

REPORT INFORMATION
  Report Type: Spontaneous
  Country: TN (occurrence: TN)
  Receive Date: 20180914
  Receipt Date: 20181009
  Transmission Date: 20190204
  Serious: Yes (Hospitalization, Other)
  Sender: FDA-Public Use
  Company Number: TN-IMPAX LABORATORIES, INC-2018-IPXL-02933

PATIENT
  Age: 18 Year
  Sex: Male

DRUGS (4)
  1. ADRENACLICK [Suspect]
     Active Substance: EPINEPHRINE
     Dosage: WEANING OFF
     Route: 042
  2. ACEBUTOLOL [Suspect]
     Active Substance: ACEBUTOLOL
     Indication: SUICIDE ATTEMPT
     Dosage: 5600 MG, UNK
     Route: 065
  3. ADRENACLICK [Suspect]
     Active Substance: EPINEPHRINE
     Indication: TOXICITY TO VARIOUS AGENTS
     Dosage: 0.08 MCG/KG/MIN, I.V. INFUSION
     Route: 042
  4. ADRENACLICK [Suspect]
     Active Substance: EPINEPHRINE
     Dosage: 0.14 MCG/KG/MIN, I.V. INFUSION
     Route: 042

REACTIONS (1)
  - Stress cardiomyopathy [Recovered/Resolved]
